FAERS Safety Report 7979349-1 (Version None)
Quarter: 2011Q4

REPORT INFORMATION
  Report Type: 
  Country: None (occurrence: None)
  Receive Date: 20111129
  Receipt Date: 20110829
  Transmission Date: 20120403
  Serious: Yes (Hospitalization)
  Sender: FDA-Public Use
  Company Number: PHEH2011US02810

PATIENT
  Age: 65 Year
  Sex: Female
  Weight: 100.0181 kg

DRUGS (3)
  1. VERAPAMIL (VERAPAMIL) CAPSULE [Concomitant]
  2. AFINITOR [Suspect]
     Dosage: 10 MG, QD, ORAL 5 MG, QD
     Route: 048
     Dates: start: 20110105
  3. LEVOTHYROXINE (LEVOTHYROXINE) TABLET [Concomitant]

REACTIONS (3)
  - FATIGUE [None]
  - ANAEMIA [None]
  - DIARRHOEA [None]
